FAERS Safety Report 6770438-6 (Version None)
Quarter: 2010Q2

REPORT INFORMATION
  Report Type: 
  Country: None (occurrence: None)
  Receive Date: 20100615
  Receipt Date: 20100603
  Transmission Date: 20101027
  Serious: Yes (Hospitalization)
  Sender: FDA-Public Use
  Company Number: FR-PFIZER INC-2010069653

PATIENT
  Age: 63 Year
  Sex: Female

DRUGS (9)
  1. LYRICA [Suspect]
     Indication: NEURALGIA
     Dosage: 100 MG, 2X/DAY
     Route: 048
     Dates: start: 20090629, end: 20091028
  2. TERALHITE [Concomitant]
  3. NOCTAMID [Concomitant]
  4. XANAX [Concomitant]
  5. LEPTICUR [Concomitant]
  6. COVERSYL [Concomitant]
  7. ZUCLOPENTHIXOL DECANOATE [Concomitant]
  8. PLAVIX [Concomitant]
  9. TERCIAN [Concomitant]

REACTIONS (1)
  - ATRIAL FIBRILLATION [None]
